FAERS Safety Report 4601460-3 (Version None)
Quarter: 2005Q1

REPORT INFORMATION
  Report Type: 
  Country: None (occurrence: None)
  Receive Date: 20050307
  Receipt Date: 20050221
  Transmission Date: 20050727
  Serious: Yes (Life-Threatening, Hospitalization)
  Sender: FDA-Public Use
  Company Number: GXKR2005GB00624

PATIENT
  Age: 77 Year
  Sex: Female

DRUGS (5)
  1. RAMIPRIL [Suspect]
     Indication: CARDIAC FAILURE CONGESTIVE
     Dosage: 5 MG, BID, ORAL
     Route: 048
     Dates: start: 19990101
  2. FUROSEMIDE (NGX) (FUROSEMIDE) [Suspect]
     Indication: CARDIAC FAILURE CONGESTIVE
     Dosage: 40 MG, QD, ORAL
     Route: 048
     Dates: start: 19990101
  3. BISOPROLOL FUMARATE [Concomitant]
  4. COMBIVENT [Concomitant]
  5. FLIXOTIDE (FLUTICASONE PROPIONATE) [Concomitant]

REACTIONS (3)
  - DERMATITIS EXFOLIATIVE [None]
  - SEPSIS [None]
  - STAPHYLOCOCCAL INFECTION [None]
